FAERS Safety Report 18883721 (Version 1)
Quarter: 2021Q1

REPORT INFORMATION
  Report Type: Spontaneous
  Country: US (occurrence: US)
  Receive Date: 20210212
  Receipt Date: 20210212
  Transmission Date: 20210420
  Serious: Yes (Life-Threatening, Hospitalization, Other)
  Sender: FDA-Public Use
  Company Number: US-SCIEGEN-2021SCILIT00076

PATIENT
  Age: 52 Year
  Sex: Male

DRUGS (4)
  1. SODIUM BICARBONATE. [Interacting]
     Active Substance: SODIUM BICARBONATE
     Dosage: ADDITIONAL 50MEQ
     Route: 065
  2. SODIUM BICARBONATE. [Interacting]
     Active Substance: SODIUM BICARBONATE
     Indication: PRODUCT USED FOR UNKNOWN INDICATION
     Dosage: 150ML/HR
     Route: 065
  3. METFORMIN [Suspect]
     Active Substance: METFORMIN HYDROCHLORIDE
     Indication: PRODUCT USED FOR UNKNOWN INDICATION
     Route: 048
  4. SODIUM BICARBONATE. [Interacting]
     Active Substance: SODIUM BICARBONATE
     Dosage: INCREASED TO 600ML/HR
     Route: 065

REACTIONS (4)
  - Toxicity to various agents [Recovering/Resolving]
  - Intentional overdose [Unknown]
  - Hypotension [Unknown]
  - Lactic acidosis [Recovering/Resolving]
